FAERS Safety Report 24776055 (Version 2)
Quarter: 2024Q4

REPORT INFORMATION
  Report Type: Report from Study
  Country: BE (occurrence: BE)
  Receive Date: 20241226
  Receipt Date: 20241231
  Transmission Date: 20250114
  Serious: Yes (Hospitalization)
  Sender: ABBVIE
  Company Number: BE-ABBVIE-6062656

PATIENT
  Age: 83 Year
  Sex: Female
  Weight: 54 kg

DRUGS (8)
  1. FOSCARBIDOPA\FOSLEVODOPA [Suspect]
     Active Substance: FOSCARBIDOPA\FOSLEVODOPA
     Indication: Parkinson^s disease
     Dosage: LAST ADMIN DATE- NOV 2024
     Route: 058
     Dates: start: 20241125
  2. FOSCARBIDOPA\FOSLEVODOPA [Suspect]
     Active Substance: FOSCARBIDOPA\FOSLEVODOPA
     Dosage: 24 HRS PUMP?LOADING DOSE: 0.00?BASE/HIGH/LOW INFUSION RATE (ML/H) 0.72 AND EXTRA DOSAGE 0.20?THER...
     Route: 058
     Dates: start: 20240924, end: 20240924
  3. FOSCARBIDOPA\FOSLEVODOPA [Suspect]
     Active Substance: FOSCARBIDOPA\FOSLEVODOPA
     Dosage: LOADING DOSE: 1.20?BASE/HIGH INFUSION RATE (ML/H) 0.72?LOW INFUSION RATE (ML/H) 0.70  AND EXTRA D...
     Route: 058
     Dates: start: 20241128
  4. FOSCARBIDOPA\FOSLEVODOPA [Suspect]
     Active Substance: FOSCARBIDOPA\FOSLEVODOPA
     Dosage: BASE/HIGH INFUSION RATE (ML/H) 0.72?LOW INFUSION RATE (ML/H) 0.72  AND EXTRA DOSAGE 0.20?THERAPY ...
     Route: 058
     Dates: start: 20240925, end: 20240925
  5. MOVICOL [Concomitant]
     Active Substance: POLYETHYLENE GLYCOL 3350\POTASSIUM CHLORIDE\SODIUM BICARBONATE\SODIUM CHLORIDE
     Indication: Constipation
     Dosage: 1 SACHET
     Dates: start: 20200804
  6. METARELAX [Concomitant]
     Indication: Product used for unknown indication
     Dosage: 1 CO
     Dates: start: 20200804
  7. KEPPRA [Concomitant]
     Active Substance: LEVETIRACETAM
     Indication: Product used for unknown indication
     Dosage: 1000 MG 2X/DAY
     Dates: start: 20200804
  8. VITAMIN D NOS [Concomitant]
     Active Substance: CHOLECALCIFEROL\ERGOCALCIFEROL
     Indication: Product used for unknown indication
     Dates: start: 20200804

REACTIONS (1)
  - Respiratory disorder [Not Recovered/Not Resolved]

NARRATIVE: CASE EVENT DATE: 20240101
